FAERS Safety Report 7798493-5 (Version None)
Quarter: 2011Q4

REPORT INFORMATION
  Report Type: 
  Country: None (occurrence: None)
  Receive Date: 20111005
  Receipt Date: 20110929
  Transmission Date: 20120403
  Serious: No
  Sender: FDA-Public Use
  Company Number: US-PFIZER INC-2011219879

PATIENT
  Sex: Female

DRUGS (3)
  1. ZOLOFT [Suspect]
     Indication: SOCIAL PHOBIA
     Dosage: 25 MG, UNK
     Route: 048
     Dates: start: 20110901
  2. ZOLOFT [Suspect]
     Indication: ANXIETY
  3. ZOLOFT [Suspect]
     Indication: IRRITABLE BOWEL SYNDROME

REACTIONS (5)
  - DRUG EFFECT DECREASED [None]
  - NAUSEA [None]
  - INSOMNIA [None]
  - MIGRAINE [None]
  - HEADACHE [None]
